FAERS Safety Report 6327700-0 (Version None)
Quarter: 2009Q3

REPORT INFORMATION
  Report Type: 
  Country: None (occurrence: None)
  Receive Date: 20090825
  Receipt Date: 20090813
  Transmission Date: 20100115
  Serious: Yes (Other)
  Sender: FDA-Public Use
  Company Number: MX-JNJCH-2009022285

PATIENT
  Sex: Female
  Weight: 75 kg

DRUGS (3)
  1. LISTERINE POCKETPAK [Suspect]
     Indication: DENTAL DISORDER PROPHYLAXIS
     Dosage: TEXT:UNSPECIFIED
     Route: 048
  2. SPASMOPRIV [Concomitant]
     Indication: DRUG USE FOR UNKNOWN INDICATION
     Dosage: TEXT:200MG, FREQUENCY UNSPECIFIED
     Route: 048
  3. GALENIC /IBUPROFEN/PARACETAMOL/ [Concomitant]
     Indication: DRUG USE FOR UNKNOWN INDICATION
     Dosage: TEXT:200 AND 325MG, FREQUENCY UNSPECIFIED
     Route: 048

REACTIONS (5)
  - DYSPNOEA [None]
  - ERYTHEMA [None]
  - OCULAR HYPERAEMIA [None]
  - PRURITUS [None]
  - SKIN PLAQUE [None]
